FAERS Safety Report 13180582 (Version 1)
Quarter: 2017Q1

REPORT INFORMATION
  Report Type: Spontaneous
  Country: ID (occurrence: ID)
  Receive Date: 20170202
  Receipt Date: 20170202
  Transmission Date: 20170428
  Serious: Yes (Other)
  Sender: FDA-Public Use
  Company Number: ID-009507513-1701IDN014520

PATIENT
  Age: 7 Year
  Sex: Male
  Weight: 54 kg

DRUGS (5)
  1. COAL TAR. [Suspect]
     Active Substance: COAL TAR
     Indication: PSORIASIS
     Dosage: UNK UNK, TID
     Route: 061
     Dates: start: 2002
  2. SALICYLIC ACID. [Suspect]
     Active Substance: SALICYLIC ACID
     Indication: PSORIASIS
     Dosage: UNK UNK, TID
     Route: 061
     Dates: start: 2002
  3. FLUOCINOLONE ACETONIDE. [Suspect]
     Active Substance: FLUOCINOLONE ACETONIDE
     Indication: PSORIASIS
     Dosage: 5 G, TID
     Route: 061
     Dates: start: 2002
  4. MOMETASONE FUROATE. [Suspect]
     Active Substance: MOMETASONE FUROATE
     Indication: PSORIASIS
     Dosage: 10 G, TID
     Route: 061
     Dates: start: 2002
  5. GENTAMICIN SULFATE. [Suspect]
     Active Substance: GENTAMICIN SULFATE
     Indication: PSORIASIS
     Dosage: 5 G, TID
     Route: 061
     Dates: start: 2002

REACTIONS (1)
  - Cushing^s syndrome [Recovering/Resolving]
